FAERS Safety Report 15675446 (Version 1)
Quarter: 2018Q4

REPORT INFORMATION
  Report Type: Spontaneous
  Country: AR (occurrence: AR)
  Receive Date: 20181130
  Receipt Date: 20181130
  Transmission Date: 20190205
  Serious: Yes (Other)
  Sender: FDA-Public Use
  Company Number: AR-GLAXOSMITHKLINE-AR2018GSK213757

PATIENT
  Sex: Male
  Weight: 80 kg

DRUGS (5)
  1. LORATADINE. [Concomitant]
     Active Substance: LORATADINE
     Indication: PRODUCT USED FOR UNKNOWN INDICATION
     Dosage: UNK
  2. HIDROTISONA [Concomitant]
     Indication: PRODUCT USED FOR UNKNOWN INDICATION
     Dosage: 40 MG, TID
  3. LIPOCAMBI [Concomitant]
     Indication: STENT PLACEMENT
     Dosage: UNK
  4. VITAMIN D [Concomitant]
     Active Substance: CHOLECALCIFEROL
     Indication: OSTEOPOROSIS
     Dosage: UNK
  5. SERETIDE [Suspect]
     Active Substance: FLUTICASONE PROPIONATE\SALMETEROL XINAFOATE
     Indication: ASTHMA
     Dosage: 1 DF, BID (BREATH(S))

REACTIONS (9)
  - Dyspnoea [Recovering/Resolving]
  - Peak expiratory flow rate decreased [Recovering/Resolving]
  - Wrong technique in product usage process [Unknown]
  - Cough [Recovering/Resolving]
  - Cardiac failure [Recovering/Resolving]
  - Breath sounds abnormal [Recovering/Resolving]
  - Product complaint [Unknown]
  - Agitation [Recovered/Resolved]
  - Fatigue [Recovering/Resolving]
